FAERS Safety Report 7596784-4 (Version None)
Quarter: 2011Q3

REPORT INFORMATION
  Report Type: 
  Country: None (occurrence: None)
  Receive Date: 20110708
  Receipt Date: 20110630
  Transmission Date: 20111222
  Serious: Yes (Hospitalization)
  Sender: FDA-Public Use
  Company Number: US-ASTELLAS-2011US003579

PATIENT

DRUGS (10)
  1. CHLORTHALIDONE [Concomitant]
     Indication: BLOOD PRESSURE
     Dosage: 25 MG, UID/QD
     Route: 048
  2. WELLBUTRIN [Concomitant]
     Indication: ANTIDEPRESSANT THERAPY
     Dosage: 150 MG, BID
     Route: 048
  3. MULTI-VITAMIN [Concomitant]
     Indication: PRODUCT USED FOR UNKNOWN INDICATION
     Dosage: 1 DF, UID/QD
     Route: 048
  4. DAPSONE [Concomitant]
     Indication: PRODUCT USED FOR UNKNOWN INDICATION
     Dosage: 100 MG, 3XWEEKLY
     Route: 048
  5. MAGNESIUM OXIDE [Concomitant]
     Indication: PRODUCT USED FOR UNKNOWN INDICATION
     Dosage: 400 MG, UID/QD
     Route: 048
  6. ATENOLOL [Concomitant]
     Indication: BLOOD PRESSURE
     Dosage: 100 MG, UID/QD
     Route: 048
  7. CELLCEPT [Concomitant]
     Indication: LIVER TRANSPLANT
     Dosage: 750 MG, BID
     Route: 048
  8. LAMICTAL [Concomitant]
     Indication: ANTIDEPRESSANT THERAPY
     Dosage: 200 MG, BID
     Route: 048
  9. DITROPAN [Concomitant]
     Indication: BLADDER DISORDER
     Dosage: 10 MG, BID
     Route: 048
  10. PROGRAF [Suspect]
     Indication: LIVER TRANSPLANT
     Dosage: 3 MG, BID
     Route: 048
     Dates: start: 20031026, end: 20110630

REACTIONS (5)
  - HERNIA [None]
  - KNEE OPERATION [None]
  - MENISCUS LESION [None]
  - POSTOPERATIVE HERNIA [None]
  - HIP SURGERY [None]
